FAERS Safety Report 24427753 (Version 1)
Quarter: 2024Q4

REPORT INFORMATION
  Report Type: Spontaneous
  Country: CA (occurrence: CA)
  Receive Date: 20241011
  Receipt Date: 20241011
  Transmission Date: 20250114
  Serious: Yes (Hospitalization)
  Sender: WAYLIS
  Company Number: CA-ROCHE-10000096418

PATIENT
  Sex: Female

DRUGS (4)
  1. DIAZEPAM [Suspect]
     Active Substance: DIAZEPAM
     Indication: Depression
  2. DIAZEPAM [Suspect]
     Active Substance: DIAZEPAM
     Indication: Anxiety
  3. DULOXETINE HYDROCHLORIDE [Suspect]
     Active Substance: DULOXETINE HYDROCHLORIDE
     Indication: Depression
  4. DULOXETINE HYDROCHLORIDE [Suspect]
     Active Substance: DULOXETINE HYDROCHLORIDE
     Indication: Anxiety

REACTIONS (5)
  - Drug withdrawal convulsions [Recovered/Resolved]
  - Drug withdrawal syndrome [Recovered/Resolved]
  - Epilepsy [Recovered/Resolved]
  - Postictal psychosis [Recovered/Resolved]
  - Unmasking of previously unidentified disease [Recovered/Resolved]
